FAERS Safety Report 10399022 (Version 1)
Quarter: 2014Q3

REPORT INFORMATION
  Report Type: Other
  Country: NL (occurrence: NL)
  Receive Date: 20140821
  Receipt Date: 20140821
  Transmission Date: 20150326
  Serious: Yes (Other)
  Sender: FDA-Public Use
  Company Number: NL-MYLANLABS-2014M1001544

PATIENT

DRUGS (1)
  1. TERBINAFINE 250MG [Suspect]
     Active Substance: TERBINAFINE
     Indication: FUNGAL INFECTION
     Dosage: 1 KEER PER DAG 1 STUK(S)
     Route: 048
     Dates: start: 20140701, end: 20140714

REACTIONS (1)
  - Lichen planus [Recovered/Resolved]

NARRATIVE: CASE EVENT DATE: 20140714
